FAERS Safety Report 5014307-0 (Version None)
Quarter: 2006Q2

REPORT INFORMATION
  Report Type: 
  Country: None (occurrence: None)
  Receive Date: 20060414
  Receipt Date: 20060207
  Transmission Date: 20061013
  Serious: No
  Sender: FDA-Public Use
  Company Number: 2005SP004113

PATIENT
  Age: 76 Year
  Sex: Male
  Weight: 72.5755 kg

DRUGS (4)
  1. LUNESTA [Suspect]
     Indication: INSOMNIA
     Dosage: 3 MG;1X;ORAL
     Route: 048
     Dates: start: 20051122, end: 20051122
  2. METOPROLOL TARTRATE [Concomitant]
  3. ALTACE [Concomitant]
  4. ASPIRIN [Concomitant]

REACTIONS (2)
  - DYSGEUSIA [None]
  - POLLAKIURIA [None]
